FAERS Safety Report 19247229 (Version 2)
Quarter: 2022Q1

REPORT INFORMATION
  Report Type: Spontaneous
  Country: US (occurrence: US)
  Receive Date: 20210512
  Receipt Date: 20220112
  Transmission Date: 20220423
  Serious: No
  Sender: FDA-Public Use
  Company Number: US-GLENMARK PHARMACEUTICALS-2021GMK052824

PATIENT

DRUGS (3)
  1. HEATHER [Suspect]
     Active Substance: NORETHINDRONE
     Indication: Contraception
     Dosage: 1 DOSAGE FORM, QD
     Route: 048
     Dates: start: 20210228
  2. IBUPROFEN [Concomitant]
     Active Substance: IBUPROFEN
     Indication: Headache
     Dosage: 600 MILLIGRAM, PRN
     Route: 048
  3. PROBIOTICS NOS [Concomitant]
     Active Substance: PROBIOTICS NOS
     Indication: Gastrointestinal disorder
     Dosage: 1 DOSAGE FORM, QD
     Route: 048
     Dates: start: 202102

REACTIONS (2)
  - Product dose omission in error [Unknown]
  - No adverse event [Unknown]

NARRATIVE: CASE EVENT DATE: 20210310
